FAERS Safety Report 5418166-3 (Version None)
Quarter: 2007Q3

REPORT INFORMATION
  Report Type: 
  Country: None (occurrence: None)
  Receive Date: 20070817
  Receipt Date: 20070809
  Transmission Date: 20080115
  Serious: Yes (Hospitalization)
  Sender: FDA-Public Use
  Company Number: US-ELI_LILLY_AND_COMPANY-US200606003035

PATIENT
  Age: 29 Year
  Sex: Female

DRUGS (8)
  1. HUMULIN N [Suspect]
     Indication: DIABETES MELLITUS
     Dosage: 8 U, 2/D
     Dates: start: 20060606, end: 20060806
  2. PRENATAL VITAMINS [Concomitant]
     Dosage: UNK, UNK
     Dates: start: 20060101, end: 20070125
  3. METHYLDOPA [Concomitant]
     Indication: HYPERTENSION
     Dosage: 250 UNK, 2/D
     Dates: end: 20070101
  4. HUMALOG [Suspect]
     Indication: DIABETES MELLITUS
     Dates: start: 20060829
  5. HUMALOG [Suspect]
     Dosage: 22 U, UNK
     Dates: end: 20070105
  6. LANTUS [Concomitant]
     Dosage: 40 U, UNK
     Dates: start: 20061018
  7. LANTUS [Concomitant]
     Dosage: 40 U, UNK
     Dates: end: 20070326
  8. LABETALOL HCL [Concomitant]
     Indication: CARDIAC DISORDER
     Dosage: 200 UNK, UNK
     Dates: start: 20060601, end: 20070101

REACTIONS (3)
  - BLOOD PRESSURE ABNORMAL [None]
  - DRUG EXPOSURE DURING PREGNANCY [None]
  - PRE-ECLAMPSIA [None]
